FAERS Safety Report 25920615 (Version 1)
Quarter: 2025Q4

REPORT INFORMATION
  Report Type: Spontaneous
  Country: CN (occurrence: CN)
  Receive Date: 20251014
  Receipt Date: 20251014
  Transmission Date: 20260117
  Serious: Yes (Other)
  Sender: PFIZER
  Company Number: CN-PFIZER INC-PV202500120836

PATIENT
  Age: 42 Year
  Sex: Female

DRUGS (3)
  1. CYTARABINE [Suspect]
     Active Substance: CYTARABINE
     Indication: Chemotherapy
     Dosage: 0.16 G, 1X/DAY
     Route: 041
     Dates: start: 20250715, end: 20250718
  2. DAUNORUBICIN HYDROCHLORIDE [Suspect]
     Active Substance: DAUNORUBICIN HYDROCHLORIDE
     Indication: Chemotherapy
     Dosage: 90 MG, 1X/DAY
     Route: 041
     Dates: start: 20250715, end: 20250718
  3. VENCLEXTA [Suspect]
     Active Substance: VENETOCLAX
     Indication: Chemotherapy
     Dosage: 1400 MG, 1X/DAY
     Route: 048
     Dates: start: 20250715, end: 20250715

REACTIONS (6)
  - Nausea [Recovered/Resolved]
  - Vomiting [Unknown]
  - Feeding disorder [Unknown]
  - Neutropenia [Recovered/Resolved]
  - Pneumonia [Unknown]
  - Platelet count decreased [Recovered/Resolved]

NARRATIVE: CASE EVENT DATE: 20250101
